FAERS Safety Report 5588569-5 (Version None)
Quarter: 2008Q1

REPORT INFORMATION
  Report Type: 
  Country: None (occurrence: None)
  Receive Date: 20080111
  Receipt Date: 20071031
  Transmission Date: 20080703
  Serious: Yes (Hospitalization)
  Sender: FDA-Public Use
  Company Number: US-BRISTOL-MYERS SQUIBB COMPANY-13965322

PATIENT
  Age: 42 Year
  Sex: Female
  Weight: 127 kg

DRUGS (5)
  1. TRAZODONE HCL [Suspect]
     Indication: SLEEP DISORDER
     Route: 048
     Dates: start: 20041101
  2. LAMICTAL [Suspect]
     Indication: BIPOLAR DISORDER
     Route: 048
     Dates: start: 20070831, end: 20070926
  3. PAXIL [Suspect]
  4. REQUIP [Suspect]
     Indication: RESTLESS LEGS SYNDROME
     Route: 048
     Dates: start: 20061101
  5. BACTRIM [Concomitant]
     Dates: start: 20070918, end: 20070926

REACTIONS (1)
  - RASH [None]
